FAERS Safety Report 23184890 (Version 2)
Quarter: 2023Q4

REPORT INFORMATION
  Report Type: Report from Study
  Country: CA (occurrence: CA)
  Receive Date: 20231115
  Receipt Date: 20231205
  Transmission Date: 20240109
  Serious: Yes (Other)
  Sender: FDA-Public Use
  Company Number: CA-ABBVIE-5490381

PATIENT
  Sex: Male

DRUGS (1)
  1. RINVOQ [Suspect]
     Active Substance: UPADACITINIB
     Indication: Rheumatoid arthritis
     Dosage: 15MG?DOSE: 15 MG PO, OD
     Route: 048
     Dates: start: 20220825, end: 20230209

REACTIONS (4)
  - Upper limb fracture [Unknown]
  - Hypertension [Unknown]
  - Blood test abnormal [Unknown]
  - Post procedural haemorrhage [Unknown]
